FAERS Safety Report 22210424 (Version 1)
Quarter: 2023Q2

REPORT INFORMATION
  Report Type: Spontaneous
  Country: None (occurrence: GB)
  Receive Date: 20230414
  Receipt Date: 20230414
  Transmission Date: 20230721
  Serious: Yes (Hospitalization, Other)
  Sender: FDA-Public Use
  Company Number: GB-Therakind Limited-2140329

PATIENT

DRUGS (1)
  1. METHOTREXATE [Suspect]
     Active Substance: METHOTREXATE
     Indication: Rheumatoid arthritis

REACTIONS (7)
  - Toxicity to various agents [Unknown]
  - Condition aggravated [Recovering/Resolving]
  - Renal impairment [Unknown]
  - Ulcer haemorrhage [Unknown]
  - Mouth ulceration [Recovering/Resolving]
  - Skin ulcer [Unknown]
  - Incorrect dose administered [Unknown]
